FAERS Safety Report 13974068 (Version 1)
Quarter: 2017Q3

REPORT INFORMATION
  Report Type: Spontaneous
  Country: US (occurrence: US)
  Receive Date: 20170915
  Receipt Date: 20170915
  Transmission Date: 20171128
  Serious: No
  Sender: FDA-Public Use
  Company Number: US-BAUSCH-BL-2016-031760

PATIENT
  Sex: Female

DRUGS (2)
  1. FLUOROURACIL. [Suspect]
     Active Substance: FLUOROURACIL
     Indication: PRODUCT USED FOR UNKNOWN INDICATION
     Dosage: APPLIED TWICE A DAY FOR 2 WEEKS; THEN 2 WEEKS OFF
     Route: 061
     Dates: start: 20161122, end: 20161206
  2. FLUOROURACIL. [Suspect]
     Active Substance: FLUOROURACIL
     Dosage: APPLY TOPICALLY ON UPPER LIP AND LEFT CHEEKS FOR TWO WEEKS
     Route: 061
     Dates: start: 20161122, end: 20161206

REACTIONS (3)
  - Application site irritation [Recovered/Resolved]
  - Application site swelling [Unknown]
  - Application site erythema [Recovered/Resolved]
